FAERS Safety Report 8962943 (Version 1)
Quarter: 2012Q4

REPORT INFORMATION
  Report Type: 
  Country: US (occurrence: US)
  Receive Date: 20121214
  Receipt Date: 20121214
  Transmission Date: 20130627
  Serious: Yes (Other)
  Sender: FDA-Public Use
  Company Number: US-JNJFOC-20121202403

PATIENT
  Age: 47 Year
  Sex: Female

DRUGS (11)
  1. INVEGA [Suspect]
     Indication: SCHIZOPHRENIA
     Route: 048
     Dates: end: 2012
  2. INVEGA [Suspect]
     Indication: SCHIZOPHRENIA
     Route: 048
     Dates: start: 2012
  3. NITROGLYCERIN [Concomitant]
     Indication: ANGINA PECTORIS
     Route: 065
  4. BABY ASPIRIN [Concomitant]
     Route: 065
  5. SUBOXONE [Concomitant]
     Route: 065
  6. WELLBUTRIN [Concomitant]
     Route: 065
  7. EFFEXOR [Concomitant]
     Route: 065
  8. TRAZODONE [Concomitant]
     Indication: SLEEP DISORDER
     Route: 065
  9. THORAZINE [Concomitant]
     Route: 065
  10. KLONOPIN [Concomitant]
     Route: 065
  11. ACIPHEX [Concomitant]
     Route: 065

REACTIONS (6)
  - Abnormal behaviour [Not Recovered/Not Resolved]
  - Aggression [Recovered/Resolved]
  - Neoplasm [Not Recovered/Not Resolved]
  - Memory impairment [Not Recovered/Not Resolved]
  - Fear [Unknown]
  - Headache [Not Recovered/Not Resolved]
